FAERS Safety Report 11096545 (Version 1)
Quarter: 2015Q2

REPORT INFORMATION
  Report Type: Spontaneous
  Country: US (occurrence: None)
  Receive Date: 20150505
  Receipt Date: 20150505
  Transmission Date: 20150821
  Serious: Yes (Hospitalization)
  Sender: FDA-Public Use
  Company Number: 2015COV00078

PATIENT
  Age: 70 Year
  Sex: Female

DRUGS (10)
  1. PLAQUENIL [Suspect]
     Active Substance: HYDROXYCHLOROQUINE SULFATE
     Indication: PRODUCT USED FOR UNKNOWN INDICATION
  2. ACETAMINOPHEN / CODEINE (LENOLTEC WITH CODEINE NO 1) (UNKNOWN) (CODEINE, PARACETAMOL) [Concomitant]
     Active Substance: ACETAMINOPHEN\CODEINE PHOSPHATE
  3. XELJANZ [Concomitant]
     Active Substance: TOFACITINIB CITRATE
  4. CLINORIL [Suspect]
     Active Substance: SULINDAC
     Indication: RHEUMATOID ARTHRITIS
     Dosage: 1 TABLETS, UNK
  5. PREDNISONE. [Concomitant]
     Active Substance: PREDNISONE
  6. LIDOCAINE. [Concomitant]
     Active Substance: LIDOCAINE
  7. ENBREL [Suspect]
     Active Substance: ETANERCEPT
     Indication: RHEUMATOID ARTHRITIS
     Dosage: UNK, 1X/WEEK
  8. ASPIRIN (ACETYLSALICYLIC ACID) [Concomitant]
     Active Substance: ASPIRIN
  9. GABAPENTIN. [Concomitant]
     Active Substance: GABAPENTIN
  10. LISINOPRIL/ HYDROCHLOROTHIAZIDE [Concomitant]

REACTIONS (4)
  - Asthenia [None]
  - Large intestine perforation [None]
  - Drug hypersensitivity [None]
  - Clostridium difficile infection [None]

NARRATIVE: CASE EVENT DATE: 20100331
